FAERS Safety Report 7910198-6 (Version None)
Quarter: 2011Q4

REPORT INFORMATION
  Report Type: 
  Country: None (occurrence: None)
  Receive Date: 20111111
  Receipt Date: 20111104
  Transmission Date: 20120403
  Serious: Yes (Hospitalization)
  Sender: FDA-Public Use
  Company Number: US-ROCHE-677805

PATIENT
  Sex: Female
  Weight: 90 kg

DRUGS (20)
  1. DOCETAXEL [Suspect]
     Dosage: DOSE LEVEL: 60 MG/ M2. DOSE REDUCED.
     Route: 042
  2. DOCETAXEL [Suspect]
     Route: 042
  3. NAPROSYN [Concomitant]
  4. BENICAR [Concomitant]
  5. CARBOPLATIN [Suspect]
     Dosage: DOSE REDUCED.
     Route: 042
  6. DOCETAXEL [Suspect]
     Dosage: DOSE REDUCED.
     Route: 042
  7. FISH OIL [Concomitant]
  8. HERCEPTIN [Suspect]
     Indication: BREAST CANCER
     Dosage: DOSE LEVEL: 6 MG/KG. DOSAGE FORM: VIALS. LAST DOSE PRIOR TO SAE: 03 DECEMBER 2009.
     Route: 042
     Dates: start: 20091022, end: 20091223
  9. HERCEPTIN [Suspect]
     Route: 042
  10. ZOFRAN [Concomitant]
  11. CARBOPLATIN [Suspect]
     Dosage: DOSE LEVEL: 5 AUC, DOSE REDUCED.
     Route: 042
  12. CARBOPLATIN [Suspect]
     Route: 042
  13. SYNTHROID [Concomitant]
  14. ZOLOFT [Concomitant]
  15. DEXAMETHASONE [Concomitant]
  16. DOCETAXEL [Suspect]
     Indication: BREAST CANCER
     Dosage: FORM: VIALS. DOSE LEVEL: 75 MG/ M2. LAST DOSE PRIOR TO SAE: 03 DECEMBER 2009.
     Route: 042
  17. ATIVAN [Concomitant]
  18. COMPAZINE [Concomitant]
  19. CARBOPLATIN [Suspect]
     Indication: BREAST CANCER
     Dosage: DOSE LEVEL: 6 AUC, FORM VIALS.
     Route: 042
  20. M.V.I. [Concomitant]

REACTIONS (2)
  - HAEMATURIA [None]
  - RENAL FAILURE [None]
